FAERS Safety Report 6255931-7 (Version None)
Quarter: 2009Q3

REPORT INFORMATION
  Report Type: 
  Country: None (occurrence: None)
  Receive Date: 20090706
  Receipt Date: 20071121
  Transmission Date: 20100115
  Serious: Yes (Hospitalization, Other)
  Sender: FDA-Public Use
  Company Number: US-ASTRAZENECA-2006UW27520

PATIENT
  Age: 18380 Day
  Sex: Female
  Weight: 96.2 kg

DRUGS (18)
  1. SEROQUEL [Suspect]
     Indication: DEPRESSION
     Dosage: 25 - 200 MG
     Route: 048
     Dates: start: 20031106
  2. SEROQUEL [Suspect]
     Route: 048
     Dates: start: 20040101, end: 20050101
  3. LISINOPRIL [Concomitant]
  4. WELLBUTRIN XL [Concomitant]
  5. TRAZODONE HCL [Concomitant]
     Indication: SLEEP DISORDER
     Route: 048
  6. INSULIN [Concomitant]
     Dosage: 70 / 30 BID
  7. LEXAPRO [Concomitant]
  8. LUNESTA [Concomitant]
     Route: 048
  9. ENALAPRIL [Concomitant]
     Route: 048
  10. TRIAMTERENE [Concomitant]
     Dosage: 37.5 / 25 MG ONE TABLET DAILY
     Route: 048
  11. NOVOLIN [Concomitant]
     Dosage: 70 / 30 33 UNITS TWICE A DAY
     Route: 058
  12. CEPHALEXIN [Concomitant]
     Route: 048
  13. CLONAZEPAM [Concomitant]
     Dosage: 0.5 MG 1 -2 TAB DAILY
     Route: 048
  14. AMILORIDE HYDROCHLORIDE [Concomitant]
     Dosage: 5 MG /50 MG 1 TAB DAILY
     Route: 048
  15. PAXIL [Concomitant]
     Route: 048
  16. NEXIUM [Concomitant]
     Route: 048
  17. AMITRIPTYLINE HCL [Concomitant]
     Route: 048
  18. TEMAZEPAM [Concomitant]
     Indication: SLEEP DISORDER
     Route: 048

REACTIONS (2)
  - DIABETES MELLITUS [None]
  - DIABETIC NEPHROPATHY [None]
